FAERS Safety Report 15302457 (Version 2)
Quarter: 2018Q3

REPORT INFORMATION
  Report Type: Spontaneous
  Country: TW (occurrence: TW)
  Receive Date: 20180821
  Receipt Date: 20180904
  Transmission Date: 20181010
  Serious: Yes (Hospitalization, Other)
  Sender: FDA-Public Use
  Company Number: TW-JNJFOC-20180814638

PATIENT
  Age: 40 Year
  Sex: Male
  Weight: 56.6 kg

DRUGS (6)
  1. RALTEGRAVIR. [Suspect]
     Active Substance: RALTEGRAVIR
     Indication: HIV INFECTION
     Route: 065
     Dates: start: 20180502, end: 20180512
  2. PREZISTA [Suspect]
     Active Substance: DARUNAVIR ETHANOLATE
     Indication: HIV INFECTION
     Dosage: 2?3 MONTHS (90 DAYS)
     Route: 048
     Dates: start: 20180502, end: 20180509
  3. RITONAVIR. [Suspect]
     Active Substance: RITONAVIR
     Indication: HIV INFECTION
     Route: 065
     Dates: start: 20180502, end: 20180509
  4. RITONAVIR. [Suspect]
     Active Substance: RITONAVIR
     Indication: HIV INFECTION
     Dosage: 2?3 MONTHS (90 DAYS)
     Route: 065
     Dates: start: 20160201, end: 20180430
  5. PREZISTA [Suspect]
     Active Substance: DARUNAVIR ETHANOLATE
     Indication: HIV INFECTION
     Route: 048
     Dates: start: 20160201, end: 20180430
  6. RALTEGRAVIR. [Suspect]
     Active Substance: RALTEGRAVIR
     Indication: HIV INFECTION
     Dosage: 2?3 MONTHS
     Route: 065
     Dates: start: 20160201, end: 20180430

REACTIONS (5)
  - Jaundice [Unknown]
  - Drug-induced liver injury [Recovering/Resolving]
  - Hepatic cirrhosis [Recovering/Resolving]
  - Confusional state [Unknown]
  - Cholecystitis acute [Unknown]

NARRATIVE: CASE EVENT DATE: 20180420
